FAERS Safety Report 6958630-9 (Version None)
Quarter: 2010Q3

REPORT INFORMATION
  Report Type: 
  Country: None (occurrence: None)
  Receive Date: 20100830
  Receipt Date: 20100830
  Transmission Date: 20110219
  Serious: Yes (Other)
  Sender: FDA-Public Use
  Company Number: None

PATIENT
  Sex: Male
  Weight: 99.7913 kg

DRUGS (3)
  1. CYMBALTA [Suspect]
     Indication: DEPRESSION
     Dosage: CYMBALTA 1XDAY ENDOTRACHEAL
     Route: 007
     Dates: start: 20040715, end: 20100831
  2. CYMBALTA [Suspect]
     Indication: PAIN
     Dosage: CYMBALTA 1XDAY ENDOTRACHEAL
     Route: 007
     Dates: start: 20040715, end: 20100831
  3. CYMBALTA [Suspect]

REACTIONS (10)
  - ARTHRALGIA [None]
  - CARDIOMYOPATHY [None]
  - EJECTION FRACTION DECREASED [None]
  - PARAESTHESIA [None]
  - RESTLESS LEGS SYNDROME [None]
  - RHINORRHOEA [None]
  - SNEEZING [None]
  - VOMITING [None]
  - WEIGHT DECREASED [None]
  - WITHDRAWAL SYNDROME [None]
